FAERS Safety Report 5314639-2 (Version None)
Quarter: 2007Q2

REPORT INFORMATION
  Report Type: 
  Country: None (occurrence: None)
  Receive Date: 20070427
  Receipt Date: 20070416
  Transmission Date: 20071010
  Serious: Yes (Hospitalization, Other)
  Sender: FDA-Public Use
  Company Number: 2007AP000420

PATIENT
  Age: 71 Year
  Sex: Male

DRUGS (4)
  1. ALLOPURINOL [Suspect]
     Indication: GOUT
     Dosage: 100 MG; PO; QD
     Route: 048
  2. GLICLAZIDE (GLICLAZIDE) [Concomitant]
  3. METFORMIN HCL [Concomitant]
  4. CALCITRIOL [Concomitant]

REACTIONS (4)
  - DRUG ERUPTION [None]
  - EOSINOPHILIC PUSTULAR FOLLICULITIS [None]
  - EXCORIATION [None]
  - POST INFLAMMATORY PIGMENTATION CHANGE [None]
